FAERS Safety Report 5927973-X (Version None)
Quarter: 2008Q4

REPORT INFORMATION
  Report Type: 
  Country: None (occurrence: None)
  Receive Date: 20081023
  Receipt Date: 20081021
  Transmission Date: 20090506
  Serious: Yes (Hospitalization)
  Sender: FDA-Public Use
  Company Number: FR-WYE-G02403808

PATIENT
  Sex: Male

DRUGS (1)
  1. RHINADVIL [Suspect]
     Indication: OTITIS EXTERNA
     Dosage: 3 TABLETS TOTAL DAILY
     Route: 048
     Dates: start: 20081017, end: 20081019

REACTIONS (2)
  - ATRIAL FIBRILLATION [None]
  - MEDICATION ERROR [None]
